FAERS Safety Report 7002025-9 (Version None)
Quarter: 2010Q3

REPORT INFORMATION
  Report Type: 
  Country: None (occurrence: None)
  Receive Date: 20100920
  Receipt Date: 20100910
  Transmission Date: 20110219
  Serious: Yes (Other)
  Sender: FDA-Public Use
  Company Number: IE-ABBOTT-10P-229-0670197-00

PATIENT

DRUGS (1)
  1. SEVOFLURANE [Suspect]
     Indication: ACCIDENTAL EXPOSURE

REACTIONS (1)
  - OCCUPATIONAL EXPOSURE TO DRUG [None]
